FAERS Safety Report 11910081 (Version 4)
Quarter: 2016Q1

REPORT INFORMATION
  Report Type: Spontaneous
  Country: JP (occurrence: JP)
  Receive Date: 20160112
  Receipt Date: 20160226
  Transmission Date: 20160526
  Serious: Yes (Other)
  Sender: FDA-Public Use
  Company Number: JP-SUN PHARMACEUTICAL INDUSTRIES LTD-2015RR-109493

PATIENT

DRUGS (5)
  1. RITUXIMAB [Suspect]
     Active Substance: RITUXIMAB
     Indication: DIFFUSE LARGE B-CELL LYMPHOMA STAGE III
     Dosage: ON DAYS 1-5, ON A 21 DAY SCHEDULE AND THE PATIENT RECEIVED A TOAL OF 7 CYCLES OF DOSE-REDUCED R-CHOP
     Route: 065
  2. VINCRISTINE [Suspect]
     Active Substance: VINCRISTINE
     Indication: DIFFUSE LARGE B-CELL LYMPHOMA STAGE III
     Dosage: ON DAYS 1-5, ON A 21 DAY SCHEDULE AND THE PATIENT RECEIVED A TOAL OF 7 CYCLES OF DOSE-REDUCED R-CHOP
     Route: 065
  3. CYCLOPHOSPHAMIDE. [Suspect]
     Active Substance: CYCLOPHOSPHAMIDE
     Indication: DIFFUSE LARGE B-CELL LYMPHOMA STAGE III
     Dosage: ON DAYS 1-5, ON A 21 DAY SCHEDULE AND THE PATIENT RECEIVED A TOAL OF 7 CYCLES OF DOSE-REDUCED R-CHOP
     Route: 065
  4. PREDNISOLONE. [Suspect]
     Active Substance: PREDNISOLONE
     Indication: DIFFUSE LARGE B-CELL LYMPHOMA STAGE III
     Dosage: ON DAYS 1-5, ON A 21 DAY SCHEDULE AND THE PATIENT RECEIVED A TOAL OF 7 CYCLES OF DOSE-REDUCED R-CHOP
     Route: 048
  5. DOXORUBICIN [Suspect]
     Active Substance: DOXORUBICIN
     Indication: DIFFUSE LARGE B-CELL LYMPHOMA STAGE III
     Dosage: ON DAYS 1-5, ON A 21 DAY SCHEDULE AND THE PATIENT RECEIVED A TOAL OF 7 CYCLES OF DOSE-REDUCED R-CHOP
     Route: 065

REACTIONS (3)
  - Kaposi^s sarcoma [Recovered/Resolved]
  - Pneumonia bacterial [Recovered/Resolved]
  - Cytomegalovirus viraemia [Unknown]
